FAERS Safety Report 9568293 (Version 1)
Quarter: 2013Q3

REPORT INFORMATION
  Report Type: Spontaneous
  Country: US (occurrence: US)
  Receive Date: 20130930
  Receipt Date: 20130930
  Transmission Date: 20140515
  Serious: No
  Sender: FDA-Public Use
  Company Number: US-AMGEN-USASP2013052046

PATIENT
  Age: 52 Year
  Sex: Female
  Weight: 66.67 kg

DRUGS (9)
  1. ENBREL [Suspect]
     Indication: PRODUCT USED FOR UNKNOWN INDICATION
     Dosage: UNK
     Route: 065
     Dates: start: 2010
  2. ATIVAN [Concomitant]
     Dosage: UNK
  3. ENDOCET [Concomitant]
     Dosage: UNK
  4. FENTANYL [Concomitant]
     Dosage: UNK, PATCH
  5. HYOSCYAMINE [Concomitant]
     Dosage: UNK
  6. PHENERGAN                          /00033001/ [Concomitant]
     Dosage: UNK
  7. POTASSIUM CHLORIDE [Concomitant]
     Dosage: UNK
  8. SOMA [Concomitant]
     Dosage: UNK
  9. VITAMIN D                          /00107901/ [Concomitant]
     Dosage: UNK, 50K UNITS

REACTIONS (2)
  - Emotional disorder [Unknown]
  - Drug ineffective [Unknown]
